FAERS Safety Report 19467640 (Version 1)
Quarter: 2021Q2

REPORT INFORMATION
  Report Type: Spontaneous
  Country: US (occurrence: US)
  Receive Date: 20210628
  Receipt Date: 20210628
  Transmission Date: 20210717
  Serious: Yes (Other)
  Sender: FDA-Public Use
  Company Number: US-BAYER-2021-163637

PATIENT
  Age: 18 Month

DRUGS (1)
  1. VITRAKVI [Suspect]
     Active Substance: LAROTRECTINIB
     Indication: FIBROSARCOMA METASTATIC
     Dosage: UNK
     Dates: start: 20200422

REACTIONS (2)
  - Metastases to central nervous system [None]
  - Fibrosarcoma metastatic [None]
